FAERS Safety Report 22640792 (Version 1)
Quarter: 2023Q2

REPORT INFORMATION
  Report Type: Spontaneous
  Country: MA (occurrence: MA)
  Receive Date: 20230626
  Receipt Date: 20230626
  Transmission Date: 20230722
  Serious: No
  Sender: FDA-Public Use
  Company Number: MA-PFIZER INC-PV202300107078

PATIENT
  Age: 9 Year
  Sex: Female

DRUGS (1)
  1. GENOTROPIN [Suspect]
     Active Substance: SOMATROPIN
     Indication: Growth hormone deficiency
     Dosage: 1 MG, DAILY
     Route: 058
     Dates: start: 20230529

REACTIONS (3)
  - Wrong technique in device usage process [Unknown]
  - Pain in extremity [Recovering/Resolving]
  - Abdominal pain upper [Recovering/Resolving]

NARRATIVE: CASE EVENT DATE: 20230613
